FAERS Safety Report 11167346 (Version 3)
Quarter: 2015Q2

REPORT INFORMATION
  Report Type: Report from Study
  Country: US (occurrence: US)
  Receive Date: 20150605
  Receipt Date: 20150612
  Transmission Date: 20150821
  Serious: Yes (Hospitalization)
  Sender: FDA-Public Use
  Company Number: US-BIOGENIDEC-2014BI092687

PATIENT
  Age: 70 Year
  Sex: Male

DRUGS (9)
  1. PRADAXA [Concomitant]
     Active Substance: DABIGATRAN ETEXILATE MESYLATE
     Indication: ATRIAL FIBRILLATION
  2. TECFIDERA [Suspect]
     Active Substance: DIMETHYL FUMARATE
     Indication: MULTIPLE SCLEROSIS
     Dates: start: 2014, end: 2014
  3. TECFIDERA [Suspect]
     Active Substance: DIMETHYL FUMARATE
     Indication: MULTIPLE SCLEROSIS
     Route: 048
     Dates: start: 20140815
  4. TECFIDERA [Suspect]
     Active Substance: DIMETHYL FUMARATE
     Indication: MULTIPLE SCLEROSIS
     Route: 048
     Dates: start: 20140822
  5. TECFIDERA [Suspect]
     Active Substance: DIMETHYL FUMARATE
     Indication: MULTIPLE SCLEROSIS
     Dates: start: 2014
  6. TECFIDERA [Suspect]
     Active Substance: DIMETHYL FUMARATE
     Indication: MULTIPLE SCLEROSIS
     Route: 048
     Dates: start: 20140815, end: 20140821
  7. AMPYRA [Concomitant]
     Active Substance: DALFAMPRIDINE
     Indication: MUSCULAR WEAKNESS
     Dates: start: 20140821
  8. AMPYRA [Concomitant]
     Active Substance: DALFAMPRIDINE
     Indication: MUSCULAR WEAKNESS
     Dates: start: 20141115
  9. CARVEDILOL. [Concomitant]
     Active Substance: CARVEDILOL
     Indication: ATRIAL FIBRILLATION

REACTIONS (17)
  - Flushing [Unknown]
  - Fall [Recovered/Resolved]
  - Prescribed underdose [Unknown]
  - Rhinorrhoea [Not Recovered/Not Resolved]
  - Pain [Recovered/Resolved]
  - Abdominal distension [Recovered/Resolved]
  - General symptom [Not Recovered/Not Resolved]
  - Abdominal pain [Recovered/Resolved]
  - Head injury [Unknown]
  - Discomfort [Unknown]
  - Loss of consciousness [Unknown]
  - Abdominal pain upper [Not Recovered/Not Resolved]
  - Adverse drug reaction [Unknown]
  - Hyperhidrosis [Unknown]
  - Syncope [Recovered/Resolved]
  - Diarrhoea [Recovered/Resolved]
  - Hot flush [Not Recovered/Not Resolved]

NARRATIVE: CASE EVENT DATE: 2014
